FAERS Safety Report 9604368 (Version 1)
Quarter: 2013Q4

REPORT INFORMATION
  Report Type: Spontaneous
  Country: JP (occurrence: JP)
  Receive Date: 20131008
  Receipt Date: 20131008
  Transmission Date: 20140711
  Serious: Yes (Other)
  Sender: FDA-Public Use
  Company Number: PHHY2013JP110192

PATIENT
  Sex: Male

DRUGS (6)
  1. DIOVAN [Suspect]
     Indication: HYPERTENSION
     Dosage: UNK UKN, UNK
     Route: 048
     Dates: start: 20070410
  2. ALLELOCK [Concomitant]
     Dosage: UNK UKN, UNK
  3. ATARAX P [Concomitant]
     Dosage: UNK UKN, UNK
  4. ANTEBATE [Concomitant]
     Dosage: UNK UKN, UNK
  5. MINOMYCIN [Concomitant]
     Dosage: UNK UKN, UNK
  6. LOCOID [Concomitant]
     Dosage: UNK UKN, UNK

REACTIONS (3)
  - Rash generalised [Unknown]
  - Skin erosion [Unknown]
  - Pyrexia [Unknown]
